FAERS Safety Report 17425717 (Version 1)
Quarter: 2020Q1

REPORT INFORMATION
  Report Type: Report from Study
  Country: US (occurrence: US)
  Receive Date: 20200217
  Receipt Date: 20200217
  Transmission Date: 20200409
  Serious: Yes (Other)
  Sender: FDA-Public Use
  Company Number: US-UCBSA-2020006211

PATIENT
  Sex: Female

DRUGS (1)
  1. CERTOLIZUMAB PEGOL [Suspect]
     Active Substance: CERTOLIZUMAB PEGOL
     Indication: RHEUMATOID ARTHRITIS
     Dosage: UNK
     Dates: start: 20191202, end: 202001

REACTIONS (6)
  - Lower respiratory tract infection [Not Recovered/Not Resolved]
  - Eye swelling [Not Recovered/Not Resolved]
  - Sinusitis [Not Recovered/Not Resolved]
  - Skin disorder [Not Recovered/Not Resolved]
  - Rash macular [Not Recovered/Not Resolved]
  - Eye discharge [Not Recovered/Not Resolved]
